FAERS Safety Report 17197315 (Version 2)
Quarter: 2020Q2

REPORT INFORMATION
  Report Type: Spontaneous
  Country: DE (occurrence: DE)
  Receive Date: 20191224
  Receipt Date: 20200416
  Transmission Date: 20200713
  Serious: Yes (Other)
  Sender: FDA-Public Use
  Company Number: NVSC2019DE077332

PATIENT
  Age: 50 Year

DRUGS (3)
  1. DEXAMETHASONE. [Suspect]
     Active Substance: DEXAMETHASONE
     Indication: OEDEMA
  2. BEVACIZUMAB. [Suspect]
     Active Substance: BEVACIZUMAB
     Indication: RADIATION NECROSIS
     Dosage: MORE THAN 20 DF
     Route: 041
  3. DEXAMETHASONE. [Suspect]
     Active Substance: DEXAMETHASONE
     Indication: RADIATION NECROSIS
     Dosage: 8 MG
     Route: 065

REACTIONS (4)
  - Off label use [Unknown]
  - Radiation necrosis [Unknown]
  - Product use in unapproved indication [Unknown]
  - Adrenal insufficiency [Unknown]
